FAERS Safety Report 6911954-3 (Version None)
Quarter: 2010Q3

REPORT INFORMATION
  Report Type: 
  Country: None (occurrence: None)
  Receive Date: 20100806
  Receipt Date: 20080107
  Transmission Date: 20110219
  Serious: No
  Sender: FDA-Public Use
  Company Number: US-PFIZER INC-2007081131

PATIENT
  Sex: Female
  Weight: 92.99 kg

DRUGS (5)
  1. DETROL LA [Suspect]
     Indication: HYPERTONIC BLADDER
     Dates: start: 20070830
  2. ALLEGRA [Concomitant]
     Indication: HYPERSENSITIVITY
  3. GLYBURIDE [Concomitant]
     Indication: DIABETES MELLITUS
  4. LOPRESSOR [Concomitant]
  5. ADDERALL 10 [Concomitant]

REACTIONS (2)
  - DRUG EFFECT DECREASED [None]
  - MICTURITION URGENCY [None]
